FAERS Safety Report 10188229 (Version 3)
Quarter: 2014Q2

REPORT INFORMATION
  Report Type: Spontaneous
  Country: AR (occurrence: AR)
  Receive Date: 20140522
  Receipt Date: 20140609
  Transmission Date: 20141212
  Serious: Yes (Death, Hospitalization)
  Sender: FDA-Public Use
  Company Number: AR-SA-2014SA003028

PATIENT
  Age: 15 Month
  Sex: Male

DRUGS (3)
  1. MYOZYME [Suspect]
     Indication: GLYCOGEN STORAGE DISEASE TYPE II
     Route: 042
     Dates: start: 20121224, end: 20140509
  2. DIGOXIN [Concomitant]
     Indication: CARDIAC DISORDER
  3. FUROSEMIDE [Concomitant]
     Indication: CARDIAC DISORDER

REACTIONS (6)
  - Staphylococcal sepsis [Fatal]
  - Pneumonia [Not Recovered/Not Resolved]
  - Pyrexia [Not Recovered/Not Resolved]
  - Disease progression [Fatal]
  - No therapeutic response [Unknown]
  - Cardiac disorder [Unknown]
